FAERS Safety Report 15440787 (Version 2)
Quarter: 2020Q3

REPORT INFORMATION
  Report Type: Spontaneous
  Country: KG (occurrence: KG)
  Receive Date: 20180928
  Receipt Date: 20190315
  Transmission Date: 20201104
  Serious: Yes (Disabling, Other)
  Sender: FDA-Public Use
  Company Number: KG-JNJFOC-20180919076

PATIENT
  Age: 19 Year
  Sex: Female
  Weight: 54 kg

DRUGS (14)
  1. CYCLOSERINE. [Suspect]
     Active Substance: CYCLOSERINE
     Indication: TUBERCULOSIS
     Dosage: 500 (UNITS NOT REPORTED)
     Route: 065
     Dates: start: 20171201, end: 20180329
  2. LINEZOLID. [Suspect]
     Active Substance: LINEZOLID
     Indication: TUBERCULOSIS
     Route: 065
     Dates: start: 20170524, end: 20180818
  3. PYRAZINAMIDE. [Suspect]
     Active Substance: PYRAZINAMIDE
     Indication: TUBERCULOSIS
     Dosage: 800 (UNITS NOT REPORTED)
     Route: 065
     Dates: start: 20170524, end: 20171031
  4. IMIPENEM AND CILASTATIN [Suspect]
     Active Substance: CILASTATIN SODIUM\IMIPENEM
     Indication: TUBERCULOSIS
     Dosage: 2000 (UNITS NOT REPORTED)
     Route: 065
     Dates: start: 20170524, end: 20180818
  5. BEDAQUILINE [Suspect]
     Active Substance: BEDAQUILINE
     Indication: TUBERCULOSIS
     Dosage: 400 (UNITS NOT REPORTED)
     Route: 048
     Dates: start: 20170524, end: 2017
  6. AMIKACIN. [Suspect]
     Active Substance: AMIKACIN
     Indication: TUBERCULOSIS
     Dosage: 750 UNSPECIFIED UNITS
     Route: 065
     Dates: start: 20170714, end: 20171225
  7. VITAMIN B6 [Concomitant]
     Active Substance: PYRIDOXINE HYDROCHLORIDE
     Indication: PROPHYLAXIS
     Dosage: 150 UNITS NOT REPORTED
     Route: 065
     Dates: start: 20170524
  8. BEDAQUILINE [Suspect]
     Active Substance: BEDAQUILINE
     Indication: TUBERCULOSIS
     Dosage: 200 (UNITS NOT REPORTED)
     Route: 048
     Dates: start: 20170607, end: 20180329
  9. AMOXICILLIN W/CLAVULANIC ACID [Suspect]
     Active Substance: AMOXICILLIN\CLAVULANIC ACID
     Indication: TUBERCULOSIS
     Dosage: 2000 (UNITS NOT REPORTED)
     Route: 065
     Dates: start: 20170524, end: 20180818
  10. PYRAZINAMIDE. [Suspect]
     Active Substance: PYRAZINAMIDE
     Indication: TUBERCULOSIS
     Dosage: 1200 UNSPECIFIED UNITS
     Route: 065
     Dates: start: 20171118, end: 20180818
  11. AMIKACIN. [Suspect]
     Active Substance: AMIKACIN
     Indication: TUBERCULOSIS
     Dosage: 500 (UNITS NOT REPORTED)
     Route: 065
     Dates: start: 20170524, end: 20170713
  12. ISONIAZID. [Suspect]
     Active Substance: ISONIAZID
     Indication: TUBERCULOSIS
     Dosage: 600 (UNITS NOT REPORTED)
     Route: 065
     Dates: start: 20170524, end: 20170713
  13. DELAMANID [Suspect]
     Active Substance: DELAMANID
     Indication: TUBERCULOSIS
     Route: 065
     Dates: start: 20180329, end: 20180818
  14. CLOFAZIMINE [Suspect]
     Active Substance: CLOFAZIMINE
     Indication: TUBERCULOSIS
     Dosage: 100 UNSPECIFIED UNITS
     Route: 065
     Dates: start: 20180329, end: 20180818

REACTIONS (8)
  - Vomiting [Unknown]
  - Off label use [Unknown]
  - Headache [Not Recovered/Not Resolved]
  - Neuropathy peripheral [Not Recovered/Not Resolved]
  - Arthralgia [Unknown]
  - Intentional product use issue [Unknown]
  - Electrocardiogram QT prolonged [Recovered/Resolved]
  - Adverse event [Recovered/Resolved]

NARRATIVE: CASE EVENT DATE: 20170529
